FAERS Safety Report 24783184 (Version 1)
Quarter: 2024Q4

REPORT INFORMATION
  Report Type: Spontaneous
  Country: US (occurrence: None)
  Receive Date: 20241226
  Receipt Date: 20241226
  Transmission Date: 20250114
  Serious: Yes (Death)
  Sender: Public
  Company Number: None

PATIENT
  Age: 76 Year
  Sex: Female

DRUGS (2)
  1. TACROLIMUS [Suspect]
     Active Substance: TACROLIMUS
     Indication: Lung transplant
     Dosage: TWICE DAILY ORAL
     Route: 048
     Dates: start: 20180827, end: 202411
  2. MYCOPHENOLIC ACID [Suspect]
     Active Substance: MYCOPHENOLIC ACID
     Indication: Lung transplant
     Dosage: 180MG TWICE BY MOUTH
     Route: 048
     Dates: start: 20180827, end: 202411

REACTIONS (1)
  - Death [None]

NARRATIVE: CASE EVENT DATE: 20241101
